FAERS Safety Report 5920375-1 (Version None)
Quarter: 2008Q4

REPORT INFORMATION
  Report Type: 
  Country: None (occurrence: None)
  Receive Date: 20081016
  Receipt Date: 20081008
  Transmission Date: 20090506
  Serious: Yes (Other)
  Sender: FDA-Public Use
  Company Number: PHHY2008FR22022

PATIENT
  Sex: Female

DRUGS (5)
  1. EXELON [Suspect]
     Indication: DEMENTIA ALZHEIMER'S TYPE
     Dosage: 4.6 MG, QD
     Route: 062
     Dates: start: 20080704, end: 20080905
  2. PLAVIX [Concomitant]
     Route: 048
  3. APROVEL [Concomitant]
     Dosage: 300 MG
     Route: 048
  4. FLUDEX [Concomitant]
     Route: 048
  5. GLUCOPHAGE [Concomitant]
     Dosage: 500 MG
     Route: 048

REACTIONS (3)
  - APPLICATION SITE ERYTHEMA [None]
  - APPLICATION SITE EXFOLIATION [None]
  - APPLICATION SITE PRURITUS [None]
